FAERS Safety Report 8601402-X (Version None)
Quarter: 2012Q3

REPORT INFORMATION
  Report Type: 
  Country: None (occurrence: None)
  Receive Date: 20120806
  Receipt Date: 20120723
  Transmission Date: 20120928
  Serious: Yes (Hospitalization)
  Sender: FDA-Public Use
  Company Number: DKLU1082273

PATIENT
  Age: 44 Year
  Sex: Female

DRUGS (6)
  1. LORAZEPAM [Concomitant]
  2. SABRIL [Suspect]
     Indication: COMPLEX PARTIAL SEIZURES
     Dosage: 500 MG MILLIGRAM(S), 3 IN 1 D, ORAL
     Route: 048
     Dates: start: 20120405
  3. VALIUM [Concomitant]
  4. TOPAMAX [Concomitant]
  5. NEURONTIN [Concomitant]
  6. VIMPAT [Concomitant]

REACTIONS (3)
  - CONVULSION [None]
  - CENTRAL NERVOUS SYSTEM LESION [None]
  - CONDITION AGGRAVATED [None]
